FAERS Safety Report 15610752 (Version 1)
Quarter: 2018Q4

REPORT INFORMATION
  Report Type: Spontaneous
  Country: US (occurrence: US)
  Receive Date: 20181113
  Receipt Date: 20181113
  Transmission Date: 20190205
  Serious: No
  Sender: FDA-Public Use
  Company Number: US-ROCHE-2182838

PATIENT
  Sex: Female

DRUGS (3)
  1. PERJETA [Suspect]
     Active Substance: PERTUZUMAB
     Indication: INVASIVE DUCTAL BREAST CARCINOMA
     Dosage: 6 CYCLES WERE IN CONJUNCTION WITH DOCETAXEL TILL DEC/2017
     Route: 065
     Dates: start: 201709
  2. DOCETAXEL. [Concomitant]
     Active Substance: DOCETAXEL
     Indication: INVASIVE DUCTAL BREAST CARCINOMA
     Route: 065
     Dates: start: 201709, end: 201712
  3. HERCEPTIN [Suspect]
     Active Substance: TRASTUZUMAB
     Indication: INVASIVE DUCTAL BREAST CARCINOMA
     Dosage: 6 CYCLES WERE IN CONJUNCTION WITH DOCETAXEL TILL DEC/2017
     Route: 065
     Dates: start: 201709

REACTIONS (1)
  - Pruritus [Not Recovered/Not Resolved]
